FAERS Safety Report 10530072 (Version 1)
Quarter: 2014Q4

REPORT INFORMATION
  Report Type: Spontaneous
  Country: US (occurrence: None)
  Receive Date: 20141017
  Receipt Date: 20141017
  Transmission Date: 20150528
  Serious: No
  Sender: FDA-Public Use
  Company Number: AT2014GSK002480

PATIENT
  Age: 74 Year
  Sex: Female

DRUGS (1)
  1. PAROXETINE [Suspect]
     Active Substance: PAROXETINE\PAROXETINE HYDROCHLORIDE

REACTIONS (5)
  - Circulatory collapse [None]
  - Dizziness [None]
  - Contusion [None]
  - Bradyarrhythmia [None]
  - Periorbital contusion [None]
